FAERS Safety Report 22177557 (Version 1)
Quarter: 2023Q2

REPORT INFORMATION
  Report Type: Spontaneous
  Country: US (occurrence: US)
  Receive Date: 20230405
  Receipt Date: 20230405
  Transmission Date: 20230721
  Serious: No
  Sender: FDA-Public Use
  Company Number: US-CHEMOCENTRYX, INC.-2023USCCXI0938

PATIENT

DRUGS (1)
  1. TAVNEOS [Suspect]
     Active Substance: AVACOPAN
     Indication: Vasculitis
     Dosage: 30 MG, 2X/DAY WITH FOOD
     Route: 048

REACTIONS (6)
  - Nephropathy toxic [Unknown]
  - Abdominal discomfort [Unknown]
  - Laboratory test abnormal [Unknown]
  - Cough [Unknown]
  - Bronchitis [Unknown]
  - Hepatotoxicity [Unknown]
